FAERS Safety Report 7875284-8 (Version None)
Quarter: 2011Q4

REPORT INFORMATION
  Report Type: 
  Country: None (occurrence: None)
  Receive Date: 20111031
  Receipt Date: 20111024
  Transmission Date: 20120403
  Serious: Yes (Other)
  Sender: FDA-Public Use
  Company Number: NL-UCBSA-044310

PATIENT
  Age: 66 Year
  Sex: Female

DRUGS (4)
  1. PREDNISONE [Concomitant]
     Indication: RHEUMATOID ARTHRITIS
  2. METHOTREXATE [Concomitant]
     Indication: RHEUMATOID ARTHRITIS
  3. CIMZIA [Suspect]
     Route: 058
     Dates: start: 20110701, end: 20111024
  4. CIMZIA [Suspect]
     Indication: RHEUMATOID ARTHRITIS
     Dosage: IN WEEK 0,2 AND 4
     Route: 058
     Dates: start: 20110609, end: 20110701

REACTIONS (2)
  - ORAL HERPES [None]
  - IMPAIRED HEALING [None]
